FAERS Safety Report 8420940-6 (Version None)
Quarter: 2012Q2

REPORT INFORMATION
  Report Type: 
  Country: None (occurrence: None)
  Receive Date: 20120608
  Receipt Date: 20120601
  Transmission Date: 20120825
  Serious: Yes (Hospitalization)
  Sender: FDA-Public Use
  Company Number: US-BAYER-2012-015823

PATIENT
  Age: 17 Year
  Sex: Female
  Weight: 86.168 kg

DRUGS (1)
  1. YASMIN [Suspect]
     Dosage: UNK
     Dates: start: 20020101, end: 20020101

REACTIONS (4)
  - GALLBLADDER DISORDER [None]
  - INJURY [None]
  - PAIN [None]
  - EMOTIONAL DISTRESS [None]
